FAERS Safety Report 18828399 (Version 1)
Quarter: 2021Q1

REPORT INFORMATION
  Report Type: Spontaneous
  Country: US (occurrence: US)
  Receive Date: 20210201
  Receipt Date: 20210201
  Transmission Date: 20210419
  Serious: No
  Sender: FDA-Public Use
  Company Number: US-ABBVIE-20K-163-3516755-00

PATIENT
  Age: 31 Year
  Sex: Male

DRUGS (3)
  1. CITRULLINE [Concomitant]
     Active Substance: CITRULLINE
     Indication: EPILEPSY
  2. LAMOTRIGINE. [Concomitant]
     Active Substance: LAMOTRIGINE
     Indication: EPILEPSY
     Dosage: LAMOTRIGINE ER
  3. HUMIRA [Suspect]
     Active Substance: ADALIMUMAB
     Indication: PSORIASIS
     Dosage: THERAPY STARTED LAST SUMMER
     Route: 058

REACTIONS (4)
  - Wrong technique in product usage process [Unknown]
  - Skin exfoliation [Unknown]
  - Incorrect dose administered [Recovered/Resolved]
  - Skin lesion [Unknown]

NARRATIVE: CASE EVENT DATE: 20200717
